FAERS Safety Report 23308853 (Version 1)
Quarter: 2023Q4

REPORT INFORMATION
  Report Type: Spontaneous
  Country: US (occurrence: None)
  Receive Date: 20231216
  Receipt Date: 20231216
  Transmission Date: 20240110
  Serious: Yes (Disabling, Other)
  Sender: FDA-Public Use
  Company Number: None

PATIENT
  Age: 43 Year
  Sex: Female
  Weight: 58.5 kg

DRUGS (1)
  1. LEVOFLOXACIN [Suspect]
     Active Substance: LEVOFLOXACIN
     Indication: Bacterial infection
     Dates: start: 20110423, end: 20110429

REACTIONS (4)
  - Tendonitis [None]
  - Bursitis [None]
  - Neuropathy peripheral [None]
  - Arthritis [None]

NARRATIVE: CASE EVENT DATE: 20110428
